FAERS Safety Report 15109938 (Version 12)
Quarter: 2018Q4

REPORT INFORMATION
  Report Type: Spontaneous
  Country: PL (occurrence: PL)
  Receive Date: 20180705
  Receipt Date: 20181116
  Transmission Date: 20190204
  Serious: Yes (Hospitalization)
  Sender: FDA-Public Use
  Company Number: PL-LPDUSPRD-20181173

PATIENT
  Age: 37 Year
  Sex: Female

DRUGS (20)
  1. EPOETIN BETA [Suspect]
     Active Substance: ERYTHROPOIETIN
     Dosage: UNKNOWN (2000 IU)
     Route: 058
  2. LEVOTHYROXINE SODIUM. [Suspect]
     Active Substance: LEVOTHYROXINE SODIUM
     Dosage: 25 MCG (25 MCG, 1 IN 1 D)
     Route: 065
     Dates: start: 201505
  3. ACETYLSALICYLIC ACID [Suspect]
     Active Substance: ASPIRIN
     Dosage: 75 MG, 1 IN 1 D
     Route: 048
     Dates: start: 201503
  4. HEPARIN [Suspect]
     Active Substance: HEPARIN SODIUM
     Dosage: UNKNOWN
     Route: 065
  5. ASCORBIC ACID/FERRIC SULPHATE [Suspect]
     Active Substance: ASCORBIC ACID\FERROUS SULFATE
     Dosage: 1 D
     Route: 048
  6. ASCORBIC ACID/CALCIUM GLUBIONATE [Suspect]
     Active Substance: ASCORBIC ACID\CALCIUM GLUBIONATE
     Dosage: UNKNOWN
     Route: 065
  7. MALTOFER (IRON POLYMALTOSE) [Suspect]
     Active Substance: IRON POLYMALTOSE
     Dosage: UNKNOWN
     Route: 048
     Dates: start: 201503
  8. CEFUROXIME. [Suspect]
     Active Substance: CEFUROXIME
     Dosage: UNKNOWN
     Route: 065
     Dates: start: 201505
  9. SIMVASTATIN. [Suspect]
     Active Substance: SIMVASTATIN
     Dosage: 25 MG
     Route: 065
  10. METHYLDOPA. [Suspect]
     Active Substance: METHYLDOPA
     Dosage: 3 IN 1 D
     Route: 065
     Dates: start: 201503
  11. ERYTHROPOIETIN [Suspect]
     Active Substance: ERYTHROPOIETIN
     Dosage: 571.4286 (4000 IU, 1 IN 1 WK)
     Route: 065
     Dates: start: 201508
  12. ALFACALCIDOL [Suspect]
     Active Substance: ALFACALCIDOL
     Dosage: 0.25 MCG (0.25  MCG, 1 IN 1 D)
     Route: 065
  13. TORASEMIDE [Suspect]
     Active Substance: TORSEMIDE
     Dosage: 2.5 MG (2.5 MG, 1 IN 1 D)
     Route: 065
  14. ASCORBIC ACID. [Concomitant]
     Active Substance: ASCORBIC ACID
     Dosage: UNKNOWN
     Route: 065
  15. IRON DEXTRAN [Suspect]
     Active Substance: IRON DEXTRAN
     Dosage: 14.2857 MG (100 MG, 1 IN 1 WK)
     Route: 042
  16. SPIRAMYCIN [Suspect]
     Active Substance: SPIRAMYCIN
     Dosage: AFTER EACH DIALYSIS
     Route: 065
     Dates: start: 201505
  17. FERINJECT [Suspect]
     Active Substance: FERRIC CARBOXYMALTOSE
     Dosage: 50 MG
     Route: 042
  18. COLECALCIFEROL [Concomitant]
     Active Substance: CHOLECALCIFEROL
     Dosage: UNKNOWN
     Route: 065
  19. FOLIC ACID. [Suspect]
     Active Substance: FOLIC ACID
     Dosage: UNKNOWN (15 MG, 1 IN 1 D)
     Route: 048
     Dates: start: 201503
  20. VENOFER [Suspect]
     Active Substance: IRON SUCROSE
     Dosage: 100 MG
     Route: 042
     Dates: start: 201408

REACTIONS (13)
  - Live birth [Unknown]
  - Hypothyroidism [Unknown]
  - Premature rupture of membranes [Unknown]
  - Exposure during pregnancy [Unknown]
  - Premature delivery [Unknown]
  - Blood albumin decreased [Unknown]
  - Contraindicated product administered [Unknown]
  - Haematocrit decreased [Unknown]
  - Off label use [Unknown]
  - Maternal exposure during pregnancy [Unknown]
  - Cystitis [Unknown]
  - Toxoplasmosis [Unknown]
  - Oedema peripheral [Unknown]

NARRATIVE: CASE EVENT DATE: 201505
